FAERS Safety Report 13129263 (Version 1)
Quarter: 2017Q1

REPORT INFORMATION
  Report Type: Spontaneous
  Country: US (occurrence: US)
  Receive Date: 20170118
  Receipt Date: 20170118
  Transmission Date: 20170428
  Serious: Yes (Hospitalization)
  Sender: FDA-Public Use
  Company Number: None

PATIENT
  Age: 76 Year
  Sex: Female
  Weight: 68.1 kg

DRUGS (1)
  1. HYDRALAZINE [Suspect]
     Active Substance: HYDRALAZINE HYDROCHLORIDE
     Indication: BLOOD PRESSURE MEASUREMENT
     Route: 042
     Dates: start: 20161129, end: 20161129

REACTIONS (6)
  - Skin burning sensation [None]
  - Hyperaesthesia [None]
  - Skin tightness [None]
  - Rash [None]
  - Skin exfoliation [None]
  - Mass [None]

NARRATIVE: CASE EVENT DATE: 20161129
